FAERS Safety Report 6813319-1 (Version None)
Quarter: 2010Q3

REPORT INFORMATION
  Report Type: 
  Country: None (occurrence: None)
  Receive Date: 20100701
  Receipt Date: 20100623
  Transmission Date: 20110219
  Serious: Yes (Other)
  Sender: FDA-Public Use
  Company Number: US-BRISTOL-MYERS SQUIBB COMPANY-15164973

PATIENT
  Age: 78 Year
  Sex: Male

DRUGS (14)
  1. SINEMET [Suspect]
     Dosage: 1 DOSAGE FORM=25-100MG
  2. PRAMIPEXOLE DIHYDROCHLORIDE [Suspect]
     Indication: PARKINSON'S DISEASE
     Dosage: 0.125MG,0.25MG,0.5MG,1.0MG
     Dates: start: 20100422, end: 20100501
  3. WARFARIN SODIUM [Concomitant]
  4. OMEPRAZOLE [Concomitant]
  5. SIMVASTATIN [Concomitant]
  6. FINASTERIDE [Concomitant]
  7. LISINOPRIL [Concomitant]
  8. CARVEDILOL [Concomitant]
  9. MORNIFLUMATE [Concomitant]
  10. ALPRAZOLAM [Concomitant]
  11. ACETYLSALICYLIC ACID [Concomitant]
  12. ASCORBIC ACID [Concomitant]
  13. CALCIUM CARBONATE [Concomitant]
  14. HYDROCODONE [Concomitant]

REACTIONS (4)
  - ARTHRALGIA [None]
  - GAIT DISTURBANCE [None]
  - OVERDOSE [None]
  - PARKINSON'S DISEASE [None]
